FAERS Safety Report 20139157 (Version 1)
Quarter: 2021Q4

REPORT INFORMATION
  Report Type: Spontaneous
  Country: US (occurrence: None)
  Receive Date: 20211201
  Receipt Date: 20211201
  Transmission Date: 20220303
  Serious: Yes (Other)
  Sender: FDA-Public Use
  Company Number: None

PATIENT
  Age: 90 Year
  Sex: Female
  Weight: 56.7 kg

DRUGS (1)
  1. REMERON [Suspect]
     Active Substance: MIRTAZAPINE
     Dosage: FREQUENCY : AS NEEDED;?
     Route: 048
     Dates: start: 20211019, end: 20211109

REACTIONS (4)
  - Tic [None]
  - Dystonia [None]
  - Gait disturbance [None]
  - Speech disorder [None]

NARRATIVE: CASE EVENT DATE: 20211109
